FAERS Safety Report 8890641 (Version 2)
Quarter: 2012Q4

REPORT INFORMATION
  Report Type: 
  Country: NL (occurrence: NL)
  Receive Date: 20121107
  Receipt Date: 20121119
  Transmission Date: 20130627
  Serious: Yes (Other)
  Sender: FDA-Public Use
  Company Number: NL-ROCHE-1151932

PATIENT

DRUGS (4)
  1. ALTEPLASE [Suspect]
     Indication: RETINAL HAEMORRHAGE
     Dosage: strength: 20 mcg/0.1 mL
     Route: 065
  2. SULFUR HEXAFLUORIDE [Suspect]
     Indication: RETINAL HAEMORRHAGE
     Route: 065
  3. PERFLUOROPROPANE [Suspect]
     Indication: RETINAL HAEMORRHAGE
     Dosage: 10%
     Route: 065
  4. ANTI-VEGF (UNK INGREDIENTS) [Suspect]
     Indication: RETINAL HAEMORRHAGE
     Route: 048

REACTIONS (1)
  - Retinal pigment epithelial tear [Unknown]
